FAERS Safety Report 20903751 (Version 5)
Quarter: 2023Q1

REPORT INFORMATION
  Report Type: Spontaneous
  Country: US (occurrence: US)
  Receive Date: 20220602
  Receipt Date: 20230127
  Transmission Date: 20230417
  Serious: Yes (Hospitalization)
  Sender: FDA-Public Use
  Company Number: US-ELI_LILLY_AND_COMPANY-US202205011207

PATIENT
  Age: 69 Year
  Sex: Female

DRUGS (6)
  1. ADCIRCA [Suspect]
     Active Substance: TADALAFIL
     Indication: Pulmonary arterial hypertension
     Dosage: 40 MG, DAILY
     Route: 048
     Dates: start: 20190731
  2. ADCIRCA [Suspect]
     Active Substance: TADALAFIL
     Dosage: 40 MG, DAILY
     Route: 048
     Dates: start: 20220118
  3. ADCIRCA [Suspect]
     Active Substance: TADALAFIL
     Dosage: 40 MG, DAILY (ALSO REPORTED 20MG BID)
     Route: 048
     Dates: start: 20220210
  4. REMODULIN [Suspect]
     Active Substance: TREPROSTINIL
     Indication: Pulmonary arterial hypertension
     Dosage: 60.4 NG/KG/MIN, DAILY
     Route: 058
     Dates: start: 20190718
  5. REMODULIN [Suspect]
     Active Substance: TREPROSTINIL
     Dosage: 85.40 NG/KG/MIN, DAILY
     Route: 058
     Dates: start: 202007
  6. REMODULIN [Suspect]
     Active Substance: TREPROSTINIL
     Dosage: UNK UNK, OTHER (101.2 NG/KG/MIN, CONTINUOUS)
     Route: 058
     Dates: start: 202104

REACTIONS (4)
  - Dyspnoea [Unknown]
  - Dyspnoea [Unknown]
  - Oedema peripheral [Unknown]
  - Swelling [Recovered/Resolved]

NARRATIVE: CASE EVENT DATE: 20220523
